FAERS Safety Report 20640781 (Version 2)
Quarter: 2022Q2

REPORT INFORMATION
  Report Type: Spontaneous
  Country: US (occurrence: US)
  Receive Date: 20220327
  Receipt Date: 20220405
  Transmission Date: 20220720
  Serious: No
  Sender: FDA-Public Use
  Company Number: US-JNJFOC-20220324345

PATIENT
  Sex: Male

DRUGS (1)
  1. TREMFYA [Suspect]
     Active Substance: GUSELKUMAB
     Indication: Psoriatic arthropathy
     Route: 058
     Dates: start: 20220303

REACTIONS (7)
  - Myalgia [Unknown]
  - Glossodynia [Unknown]
  - Injection site inflammation [Recovering/Resolving]
  - Needle issue [Unknown]
  - Injection site pain [Unknown]
  - Injection site mass [Unknown]
  - Liquid product physical issue [Unknown]

NARRATIVE: CASE EVENT DATE: 20220301
